FAERS Safety Report 4410991-0 (Version None)
Quarter: 2004Q3

REPORT INFORMATION
  Report Type: 
  Country: None (occurrence: None)
  Receive Date: 20040729
  Receipt Date: 20040721
  Transmission Date: 20050211
  Serious: Yes (Death, Hospitalization)
  Sender: FDA-Public Use
  Company Number: ZA-GLAXOSMITHKLINE-B0340437A

PATIENT
  Age: 35 Year
  Sex: Female
  Weight: 75 kg

DRUGS (3)
  1. LAMICTIN [Suspect]
     Indication: EPILEPSY
     Dosage: 25MG PER DAY
     Route: 048
     Dates: start: 20040615, end: 20040630
  2. TOPAMAX [Concomitant]
     Indication: EPILEPSY
     Dosage: 200MG PER DAY
     Route: 048
  3. EPILIM CHRONO [Concomitant]
     Indication: EPILEPSY

REACTIONS (6)
  - HEPATITIS [None]
  - MULTI-ORGAN FAILURE [None]
  - RASH [None]
  - SEPSIS [None]
  - STEVENS-JOHNSON SYNDROME [None]
  - SYSTEMIC INFLAMMATORY RESPONSE SYNDROME [None]
